FAERS Safety Report 18403851 (Version 1)
Quarter: 2020Q4

REPORT INFORMATION
  Report Type: Spontaneous
  Country: IT (occurrence: IT)
  Receive Date: 20201020
  Receipt Date: 20201020
  Transmission Date: 20210114
  Serious: Yes (Other)
  Sender: FDA-Public Use
  Company Number: IT-TEVA-2020-IT-1839483

PATIENT
  Age: 32 Year
  Sex: Female

DRUGS (4)
  1. GLATIRAMER ACETATE. [Suspect]
     Active Substance: GLATIRAMER ACETATE
     Indication: RELAPSING-REMITTING MULTIPLE SCLEROSIS
     Dosage: THREE TIMES WEEKLY
     Route: 058
     Dates: start: 2012
  2. DIMETHYL FUMARATE [Suspect]
     Active Substance: DIMETHYL FUMARATE
     Indication: RELAPSING-REMITTING MULTIPLE SCLEROSIS
     Dosage: 480 MILLIGRAM DAILY;
     Route: 048
  3. INTERFERON BETA-1A [Suspect]
     Active Substance: INTERFERON BETA-1A
     Indication: RELAPSING-REMITTING MULTIPLE SCLEROSIS
     Dosage: THREE TIMES WEEKLY (HIGH-DOSE)
     Route: 058
  4. INTERFERON BETA-1A [Suspect]
     Active Substance: INTERFERON BETA-1A
     Dosage: SWITCHED TO LOW-DOSE WEEKLY ADMINISTRATION; SUBSEQUENTLY LOST TO FOLLOW-UP
     Route: 058

REACTIONS (1)
  - Drug-induced liver injury [Recovering/Resolving]

NARRATIVE: CASE EVENT DATE: 2012
